FAERS Safety Report 17544583 (Version 1)
Quarter: 2020Q1

REPORT INFORMATION
  Report Type: Report from Study
  Country: ES (occurrence: ES)
  Receive Date: 20200316
  Receipt Date: 20200316
  Transmission Date: 20200409
  Serious: Yes (Hospitalization, Other)
  Sender: FDA-Public Use
  Company Number: ES-ACCORD-175770

PATIENT
  Age: 81 Year
  Sex: Female

DRUGS (6)
  1. SIMVASTATIN. [Suspect]
     Active Substance: SIMVASTATIN
     Indication: DYSLIPIDAEMIA
     Route: 048
     Dates: start: 201211, end: 20190918
  2. DIGOXIN. [Concomitant]
     Active Substance: DIGOXIN
     Indication: ATRIAL FIBRILLATION
     Route: 048
  3. ACENOCOUMAROL [Interacting]
     Active Substance: ACENOCOUMAROL
     Indication: THROMBOSIS PROPHYLAXIS
     Route: 048
     Dates: start: 2002, end: 20190918
  4. FUROSEMIDE. [Concomitant]
     Active Substance: FUROSEMIDE
     Indication: HYPERTENSION
     Route: 048
     Dates: start: 201403
  5. ORFIDAL [Concomitant]
     Active Substance: LORAZEPAM
     Indication: INSOMNIA
     Route: 048
     Dates: start: 2019
  6. TRAMADOL. [Interacting]
     Active Substance: TRAMADOL
     Indication: FIBROMYALGIA
     Route: 048
     Dates: start: 2015, end: 20190918

REACTIONS (2)
  - Drug interaction [Unknown]
  - Haemorrhage intracranial [Recovered/Resolved]

NARRATIVE: CASE EVENT DATE: 201909
